FAERS Safety Report 22366455 (Version 1)
Quarter: 2023Q2

REPORT INFORMATION
  Report Type: Spontaneous
  Country: US (occurrence: US)
  Receive Date: 20230525
  Receipt Date: 20230525
  Transmission Date: 20230722
  Serious: Yes (Other)
  Sender: FDA-Public Use
  Company Number: US-MYLANLABS-2023M1053267

PATIENT
  Age: 60 Year
  Sex: Male

DRUGS (1)
  1. THIAMINE [Suspect]
     Active Substance: THIAMINE
     Indication: Vitamin supplementation
     Dosage: UNK
     Route: 065

REACTIONS (3)
  - Alcoholic encephalopathy [Recovered/Resolved]
  - Nicotinic acid deficiency [Recovered/Resolved]
  - Condition aggravated [Recovered/Resolved]
